FAERS Safety Report 6636405-8 (Version None)
Quarter: 2010Q1

REPORT INFORMATION
  Report Type: 
  Country: None (occurrence: None)
  Receive Date: 20100316
  Receipt Date: 20100304
  Transmission Date: 20100710
  Serious: Yes (Hospitalization, Other)
  Sender: FDA-Public Use
  Company Number: US-ELI_LILLY_AND_COMPANY-US201003001764

PATIENT
  Sex: Female
  Weight: 94.331 kg

DRUGS (6)
  1. BYETTA [Suspect]
     Indication: TYPE 2 DIABETES MELLITUS
     Dosage: 5 UG, 2/D
     Dates: start: 20070101
  2. CRESTOR [Concomitant]
     Route: 048
  3. SYNTHROID [Concomitant]
     Dosage: 0.05 MG, DAILY (1/D)
  4. ECOTRIN [Concomitant]
     Dosage: 325 MG, DAILY (1/D)
  5. ACTOS [Concomitant]
     Dates: end: 20090201
  6. PRAVACHOL [Concomitant]
     Dates: end: 20090601

REACTIONS (14)
  - ARRHYTHMIA [None]
  - ATRIAL FIBRILLATION [None]
  - CATHETERISATION CARDIAC [None]
  - CHEST PAIN [None]
  - DYSPHAGIA [None]
  - DYSPNOEA [None]
  - FLUID RETENTION [None]
  - HEART RATE INCREASED [None]
  - HEART VALVE REPLACEMENT [None]
  - HOSPITALISATION [None]
  - INTERNATIONAL NORMALISED RATIO INCREASED [None]
  - PAIN IN EXTREMITY [None]
  - PERICARDIAL EFFUSION [None]
  - POST PROCEDURAL HAEMORRHAGE [None]
